FAERS Safety Report 9339231 (Version 1)
Quarter: 2013Q2

REPORT INFORMATION
  Report Type: Spontaneous
  Country: US (occurrence: None)
  Receive Date: 20130606
  Receipt Date: 20130606
  Transmission Date: 20140414
  Serious: Yes (Other)
  Sender: FDA-Public Use
  Company Number: None

PATIENT
  Age: 26 Year
  Sex: Male

DRUGS (2)
  1. VALACYCLOVIR [Suspect]
     Indication: ORAL HERPES
     Dosage: X 2 DOSES
     Route: 048
     Dates: start: 20130604, end: 20130604
  2. VALACYCLOVIR [Suspect]
     Indication: PROPHYLAXIS
     Dosage: X 2 DOSES
     Route: 048
     Dates: start: 20130604, end: 20130604

REACTIONS (4)
  - Flank pain [None]
  - Back pain [None]
  - Abdominal pain [None]
  - Movement disorder [None]
